FAERS Safety Report 23327890 (Version 1)
Quarter: 2023Q4

REPORT INFORMATION
  Report Type: Spontaneous
  Country: NL (occurrence: NL)
  Receive Date: 20231221
  Receipt Date: 20231221
  Transmission Date: 20240109
  Serious: Yes (Life-Threatening)
  Sender: FDA-Public Use
  Company Number: NL-Daleco-2023-NL-000157

PATIENT
  Age: 42 Year
  Sex: Female

DRUGS (8)
  1. LORAZEPAM [Suspect]
     Active Substance: LORAZEPAM
     Indication: Product used for unknown indication
     Dosage: 1 MILLIGRAM, Q3D (1 MG MAX 3X PER DAY)
     Route: 065
  2. OLANZAPINE [Suspect]
     Active Substance: OLANZAPINE
     Indication: Product used for unknown indication
     Dosage: 10 MILLIGRAM, QD
     Route: 065
  3. TRANYLCYPROMINE SULFATE [Suspect]
     Active Substance: TRANYLCYPROMINE SULFATE
     Indication: Depression
     Dosage: 17.5 MILLIGRAM, Q2D
     Route: 065
  4. TRANYLCYPROMINE SULFATE [Suspect]
     Active Substance: TRANYLCYPROMINE SULFATE
     Indication: Bipolar disorder
     Dosage: 30 MILLIGRAM (SEVERAL DAYS)
     Route: 065
     Dates: start: 2023
  5. TRANYLCYPROMINE SULFATE [Suspect]
     Active Substance: TRANYLCYPROMINE SULFATE
     Dosage: 10 MILLIGRAM
     Route: 065
     Dates: start: 20231024
  6. TRANYLCYPROMINE SULFATE [Suspect]
     Active Substance: TRANYLCYPROMINE SULFATE
     Dosage: 40 MILLIGRAM, QD (SINCE TWO WEEKS)
     Route: 048
     Dates: start: 20231027
  7. TRANYLCYPROMINE SULFATE [Suspect]
     Active Substance: TRANYLCYPROMINE SULFATE
     Dosage: 20 MILLIGRAM, Q2D
     Route: 065
     Dates: start: 20231128
  8. LAMOTRIGINE [Concomitant]
     Active Substance: LAMOTRIGINE
     Dosage: 200 MILLIGRAM, QD
     Route: 065

REACTIONS (4)
  - Hypertensive crisis [Recovering/Resolving]
  - Food interaction [Recovering/Resolving]
  - Contraindicated product administered [Unknown]
  - Wrong technique in product usage process [Recovered/Resolved]

NARRATIVE: CASE EVENT DATE: 20230101
